FAERS Safety Report 14509265 (Version 1)
Quarter: 2018Q1

REPORT INFORMATION
  Report Type: Spontaneous
  Country: US (occurrence: US)
  Receive Date: 20180207
  Receipt Date: 20180207
  Transmission Date: 20180509
  Serious: Yes (Other)
  Sender: FDA-Public Use
  Company Number: None

PATIENT
  Age: 32 Year
  Sex: Female
  Weight: 56.7 kg

DRUGS (2)
  1. BUPRENORPHINE/NALTREXONE 8MG [Suspect]
     Active Substance: BUPRENORPHINE\NALOXONE
     Indication: DRUG DEPENDENCE
     Dosage: FREQUENCY - 2 SL DAILY
     Route: 060
     Dates: start: 2013, end: 2016
  2. SUBUTEX [Suspect]
     Active Substance: BUPRENORPHINE HYDROCHLORIDE
     Indication: DRUG DEPENDENCE
     Dosage: FREQUENCY - 2PO DAILY
     Route: 048
     Dates: start: 2013, end: 2016

REACTIONS (3)
  - Drug dependence [None]
  - Drug abuse [None]
  - Condition aggravated [None]

NARRATIVE: CASE EVENT DATE: 20160801
